FAERS Safety Report 12329404 (Version 1)
Quarter: 2016Q2

REPORT INFORMATION
  Report Type: Spontaneous
  Country: US (occurrence: US)
  Receive Date: 20160503
  Receipt Date: 20160503
  Transmission Date: 20160815
  Serious: No
  Sender: FDA-Public Use
  Company Number: US-ACTELION-A-NJ2016-134073

PATIENT
  Age: 9 Year
  Sex: Male

DRUGS (3)
  1. TRACLEER [Suspect]
     Active Substance: BOSENTAN
     Indication: PULMONARY ARTERIAL HYPERTENSION
     Dosage: UNK
     Route: 048
  2. SILDENAFIL. [Concomitant]
     Active Substance: SILDENAFIL
  3. REMODULIN [Concomitant]
     Active Substance: TREPROSTINIL

REACTIONS (5)
  - Infusion site erythema [Unknown]
  - Skin irritation [Unknown]
  - Device dislocation [Unknown]
  - Infusion site scar [Unknown]
  - Infusion site pruritus [Unknown]
